FAERS Safety Report 23866833 (Version 1)
Quarter: 2024Q2

REPORT INFORMATION
  Report Type: Spontaneous
  Country: FR (occurrence: FR)
  Receive Date: 20240517
  Receipt Date: 20240517
  Transmission Date: 20240716
  Serious: Yes (Hospitalization, Disabling, Other)
  Sender: FDA-Public Use
  Company Number: FR-MYLANLABS-2024M1044602

PATIENT
  Age: 78 Year
  Sex: Female
  Weight: 58 kg

DRUGS (10)
  1. SERTRALINE [Suspect]
     Active Substance: SERTRALINE HYDROCHLORIDE
     Indication: Anxiety
     Dosage: 50 MILLIGRAM, BID (2 IN THE EVENING, DOSE INCREASED)
     Route: 048
     Dates: start: 20210203, end: 20210214
  2. SERTRALINE [Suspect]
     Active Substance: SERTRALINE HYDROCHLORIDE
     Indication: Depression
     Dosage: UNK (GRADUALLY DECREASED)
     Route: 065
     Dates: end: 20220214
  3. LETROZOLE [Concomitant]
     Active Substance: LETROZOLE
     Indication: Breast cancer
     Dosage: 2.5 MILLIGRAM (0-0-1)
     Route: 048
     Dates: start: 20170714, end: 20210615
  4. LERCANIDIPINE [Concomitant]
     Active Substance: LERCANIDIPINE
     Indication: Hypertension
     Dosage: 10 MILLIGRAM, QD  (0-0-1)
     Route: 065
     Dates: end: 20210214
  5. CALCIUM\CHOLECALCIFEROL [Concomitant]
     Active Substance: CALCIUM\CHOLECALCIFEROL
     Indication: Product used for unknown indication
     Dosage: 1 DOSAGE FORM, QD (1-0-0)
     Route: 048
  6. PANTOPRAZOLE [Concomitant]
     Active Substance: PANTOPRAZOLE
     Indication: Product used for unknown indication
     Dosage: 20 MILLIGRAM, QD  (0-0-1)
     Route: 048
     Dates: end: 20220824
  7. ALPRAZOLAM [Concomitant]
     Active Substance: ALPRAZOLAM
     Dosage: 0.25 MILLIGRAM, BID  (1-1-0)
     Route: 065
  8. ALPRAZOLAM [Concomitant]
     Active Substance: ALPRAZOLAM
     Dosage: 0.50 MILLIGRAM, QD  (0-0-1)
     Route: 065
  9. MIRTAZAPINE [Concomitant]
     Active Substance: MIRTAZAPINE
     Dosage: 30 MILLIGRAM, QD (0-0-2)
     Route: 065
  10. CYAMEMAZINE [Concomitant]
     Active Substance: CYAMEMAZINE
     Dosage: UNK (40 MG/ML  5 DROPS IN THE MORNING AND 10 DROPS IN THE EVENING)
     Route: 048

REACTIONS (17)
  - General physical health deterioration [Recovered/Resolved]
  - Sense of oppression [Unknown]
  - Vertigo [Unknown]
  - Anxiety [Not Recovered/Not Resolved]
  - Depression [Not Recovered/Not Resolved]
  - Hyponatraemia [Unknown]
  - Hypokalaemia [Unknown]
  - Iron deficiency [Unknown]
  - Asthenia [Unknown]
  - Decreased appetite [Unknown]
  - Suicidal ideation [Unknown]
  - Gait disturbance [Unknown]
  - Loss of personal independence in daily activities [Unknown]
  - Sleep disorder [Unknown]
  - Mixed anxiety and depressive disorder [Unknown]
  - Anhedonia [Unknown]
  - Diarrhoea [Unknown]

NARRATIVE: CASE EVENT DATE: 20210214
